FAERS Safety Report 8232560-7 (Version None)
Quarter: 2012Q1

REPORT INFORMATION
  Report Type: 
  Country: None (occurrence: None)
  Receive Date: 20120323
  Receipt Date: 20120321
  Transmission Date: 20120608
  Serious: Yes (Life-Threatening)
  Sender: FDA-Public Use
  Company Number: PHHY2012IT020605

PATIENT
  Sex: Female

DRUGS (2)
  1. DEXAMETHASONE SODIUM PHOSPHATE [Concomitant]
  2. PACLITAXEL [Suspect]
     Indication: BREAST CANCER
     Dosage: 70 MG, QD
     Route: 042
     Dates: start: 20120305, end: 20120305

REACTIONS (4)
  - CONJUNCTIVITIS [None]
  - DYSPNOEA [None]
  - OXYGEN SATURATION DECREASED [None]
  - RASH [None]
